FAERS Safety Report 20970491 (Version 1)
Quarter: 2022Q2

REPORT INFORMATION
  Report Type: Spontaneous
  Country: US (occurrence: US)
  Receive Date: 20220616
  Receipt Date: 20220616
  Transmission Date: 20220721
  Serious: No
  Sender: FDA-Public Use
  Company Number: US-SA-SAC20220606001056

PATIENT
  Sex: Female

DRUGS (2)
  1. KEVZARA [Suspect]
     Active Substance: SARILUMAB
     Indication: Rheumatoid arthritis
     Dosage: 200 MG, QOW
     Route: 058
     Dates: start: 20211007
  2. TYMLOS [Concomitant]
     Active Substance: ABALOPARATIDE

REACTIONS (6)
  - Fatigue [Unknown]
  - Blood pressure decreased [Unknown]
  - Asthenia [Unknown]
  - Surgery [Unknown]
  - Product dose omission issue [Unknown]
  - Drug ineffective [Unknown]
